FAERS Safety Report 13119630 (Version 1)
Quarter: 2017Q1

REPORT INFORMATION
  Report Type: Spontaneous
  Country: FR (occurrence: FR)
  Receive Date: 20170117
  Receipt Date: 20170117
  Transmission Date: 20170428
  Serious: Yes (Hospitalization, Other)
  Sender: FDA-Public Use
  Company Number: FR-ABBVIE-17K-056-1832057-00

PATIENT
  Sex: Male

DRUGS (1)
  1. HUMIRA [Suspect]
     Active Substance: ADALIMUMAB
     Indication: PSORIATIC ARTHROPATHY
     Route: 058
     Dates: start: 20161102, end: 20161216

REACTIONS (12)
  - Disturbance in attention [Unknown]
  - Toxic skin eruption [Unknown]
  - Somnolence [Unknown]
  - Incoherent [Unknown]
  - Disorientation [Unknown]
  - Lichenoid keratosis [Unknown]
  - Speech disorder [Unknown]
  - Dermatitis exfoliative [Unknown]
  - Skin lesion [Unknown]
  - Aphasia [Unknown]
  - Rash maculo-papular [Recovering/Resolving]
  - Fall [Unknown]

NARRATIVE: CASE EVENT DATE: 2016
